FAERS Safety Report 12436751 (Version 1)
Quarter: 2016Q2

REPORT INFORMATION
  Report Type: Spontaneous
  Country: TW (occurrence: TW)
  Receive Date: 20160606
  Receipt Date: 20160606
  Transmission Date: 20160815
  Serious: Yes (Other)
  Sender: FDA-Public Use
  Company Number: TW-INVENTIA-000124

PATIENT
  Age: 46 Year
  Sex: Female

DRUGS (3)
  1. SULPIRIDE/SULPIRIDE ADAMANTANECARBOXYLAT [Interacting]
     Active Substance: SULPIRIDE
     Indication: PSYCHOTIC DISORDER
  2. CLOZAPINE. [Interacting]
     Active Substance: CLOZAPINE
     Indication: PSYCHOTIC DISORDER
  3. METFORMIN [Suspect]
     Active Substance: METFORMIN HYDROCHLORIDE
     Indication: METABOLIC SYNDROME

REACTIONS (3)
  - Dystonia [Recovered/Resolved]
  - Drug interaction [Unknown]
  - Metabolic syndrome [Unknown]
